FAERS Safety Report 4732523-X (Version None)
Quarter: 2005Q3

REPORT INFORMATION
  Report Type: 
  Country: None (occurrence: None)
  Receive Date: 20050803
  Receipt Date: 20041203
  Transmission Date: 20060218
  Serious: Yes (Death)
  Sender: FDA-Public Use
  Company Number: GB-GLAXOSMITHKLINE-B0359703A

PATIENT
  Sex: Male

DRUGS (1)
  1. SEROXAT [Suspect]
     Route: 065
     Dates: start: 19970101

REACTIONS (6)
  - COMPLETED SUICIDE [None]
  - DEPRESSION [None]
  - DISEASE RECURRENCE [None]
  - EUPHORIC MOOD [None]
  - POLYTRAUMATISM [None]
  - THERAPEUTIC RESPONSE DECREASED [None]
